FAERS Safety Report 11354851 (Version 1)
Quarter: 2015Q3

REPORT INFORMATION
  Report Type: Spontaneous
  Country: US (occurrence: US)
  Receive Date: 20150807
  Receipt Date: 20150807
  Transmission Date: 20151125
  Serious: No
  Sender: FDA-Public Use
  Company Number: US-JNJFOC-20150618016

PATIENT
  Sex: Male

DRUGS (1)
  1. RISPERDAL [Suspect]
     Active Substance: RISPERIDONE
     Indication: PRODUCT USED FOR UNKNOWN INDICATION
     Route: 048

REACTIONS (5)
  - Drug dose omission [Unknown]
  - Disorientation [Unknown]
  - Unevaluable event [Unknown]
  - Adverse drug reaction [Not Recovered/Not Resolved]
  - Memory impairment [Not Recovered/Not Resolved]
